FAERS Safety Report 5179473-5 (Version None)
Quarter: 2006Q4

REPORT INFORMATION
  Report Type: 
  Country: None (occurrence: None)
  Receive Date: 20061219
  Receipt Date: 20061212
  Transmission Date: 20070319
  Serious: Yes (Disabling, Other)
  Sender: FDA-Public Use
  Company Number: US-PURDUE-USA_2006_0025940

PATIENT
  Age: 43 Year
  Sex: Male

DRUGS (1)
  1. OXYCODONE HYDROCHLORIDE [Suspect]
     Indication: DRUG ABUSER
     Dosage: UNK, UNK

REACTIONS (9)
  - BALANCE DISORDER [None]
  - DISORIENTATION [None]
  - DYSARTHRIA [None]
  - GAIT DISTURBANCE [None]
  - HOMICIDE [None]
  - LIMB INJURY [None]
  - LOSS OF CONSCIOUSNESS [None]
  - POISONING [None]
  - SOMNOLENCE [None]
